FAERS Safety Report 5947631-5 (Version None)
Quarter: 2008Q4

REPORT INFORMATION
  Report Type: 
  Country: None (occurrence: None)
  Receive Date: 20081107
  Receipt Date: 20081023
  Transmission Date: 20090506
  Serious: No
  Sender: FDA-Public Use
  Company Number: SPI200800519

PATIENT

DRUGS (1)
  1. AMITIZA [Suspect]
     Dosage: 24 MCG, ORAL; 8 MCG, ORAL
     Route: 048

REACTIONS (1)
  - CHEST PAIN [None]
